FAERS Safety Report 12176268 (Version 2)
Quarter: 2016Q2

REPORT INFORMATION
  Report Type: Spontaneous
  Country: PL (occurrence: PL)
  Receive Date: 20160315
  Receipt Date: 20160406
  Transmission Date: 20160815
  Serious: Yes (Other)
  Sender: FDA-Public Use
  Company Number: PL-AMGEN-POLSP2016029891

PATIENT

DRUGS (1)
  1. PROLIA [Suspect]
     Active Substance: DENOSUMAB
     Indication: PRODUCT USED FOR UNKNOWN INDICATION
     Dosage: 60 MG, UNK
     Route: 065

REACTIONS (2)
  - Lymphoedema [Unknown]
  - Autoimmune thyroiditis [Unknown]
